FAERS Safety Report 4685981-3 (Version None)
Quarter: 2005Q2

REPORT INFORMATION
  Report Type: 
  Country: None (occurrence: None)
  Receive Date: 20050609
  Receipt Date: 20050531
  Transmission Date: 20051028
  Serious: Yes (Hospitalization)
  Sender: FDA-Public Use
  Company Number: 200511595JP

PATIENT
  Age: 51 Year
  Sex: Male

DRUGS (3)
  1. ARAVA [Suspect]
     Dates: start: 20050128
  2. LOXONIN [Concomitant]
     Dosage: DOSE: 2 TABLETS
  3. PREDONINE [Concomitant]

REACTIONS (4)
  - ALANINE AMINOTRANSFERASE INCREASED [None]
  - ASPARTATE AMINOTRANSFERASE INCREASED [None]
  - BILE DUCT STONE [None]
  - HEPATIC FUNCTION ABNORMAL [None]
